FAERS Safety Report 9290152 (Version 1)
Quarter: 2013Q2

REPORT INFORMATION
  Report Type: Spontaneous
  Country: JP (occurrence: JP)
  Receive Date: 20130515
  Receipt Date: 20130515
  Transmission Date: 20140414
  Serious: Yes (Hospitalization, Other)
  Sender: FDA-Public Use
  Company Number: JP-PFIZER INC-2013147242

PATIENT
  Age: 90 Year
  Sex: Male
  Weight: 55 kg

DRUGS (15)
  1. LYRICA [Suspect]
     Indication: NEURALGIA
     Dosage: 75 MG, 1X/DAY
     Route: 048
     Dates: start: 20130213, end: 20130222
  2. CLARITHROMYCIN [Suspect]
     Indication: NASOPHARYNGITIS
     Dosage: 200 MG DAILY
     Route: 048
     Dates: end: 20130222
  3. PELEX [Suspect]
     Indication: NASOPHARYNGITIS
     Dosage: 3 G DAILY
     Route: 048
     Dates: end: 20130222
  4. BAYASPIRIN [Concomitant]
  5. ITOROL [Concomitant]
  6. EPADEL S [Concomitant]
  7. OMEPRAZOLE [Concomitant]
  8. PURSENNID [Concomitant]
  9. NEUROTROPIN [Concomitant]
  10. LORCAM [Concomitant]
  11. MUCOSTA [Concomitant]
  12. FLAVERIC [Concomitant]
  13. ANTOBRON [Concomitant]
  14. SISAAL [Concomitant]
  15. LYSOZYME HYDROCHLORIDE [Concomitant]

REACTIONS (3)
  - Rhabdomyolysis [Recovered/Resolved]
  - Alanine aminotransferase increased [Unknown]
  - Aspartate aminotransferase increased [Unknown]
